FAERS Safety Report 7373063-1 (Version None)
Quarter: 2011Q1

REPORT INFORMATION
  Report Type: 
  Country: None (occurrence: None)
  Receive Date: 20110324
  Receipt Date: 20110310
  Transmission Date: 20110831
  Serious: Yes (Other)
  Sender: FDA-Public Use
  Company Number: CA-JNJFOC-20110306118

PATIENT
  Sex: Female
  Weight: 72 kg

DRUGS (9)
  1. MULTIPLE VITAMIN [Concomitant]
  2. SYNTHROID [Concomitant]
  3. VITAMIN B-12 [Concomitant]
     Dosage: STRESS TAB
  4. FOLIC ACID [Concomitant]
  5. CALCIUM [Concomitant]
  6. REMICADE [Suspect]
     Route: 042
  7. REMICADE [Suspect]
     Indication: CROHN'S DISEASE
     Route: 042
  8. ASPIRIN [Concomitant]
  9. NORVASC [Concomitant]

REACTIONS (1)
  - SJOGREN'S SYNDROME [None]
